FAERS Safety Report 10878982 (Version 2)
Quarter: 2020Q3

REPORT INFORMATION
  Report Type: Report from Study
  Country: ES (occurrence: ES)
  Receive Date: 20150302
  Receipt Date: 20150311
  Transmission Date: 20201104
  Serious: Yes (Hospitalization, Other)
  Sender: FDA-Public Use
  Company Number: PHHY2015ES021362

PATIENT
  Age: 76 Year
  Sex: Male

DRUGS (16)
  1. BIMATOPROST. [Concomitant]
     Active Substance: BIMATOPROST
     Indication: PRODUCT USED FOR UNKNOWN INDICATION
     Dosage: 2 DRP, QD
     Route: 065
     Dates: start: 2012
  2. BRINZOLAMIDE [Concomitant]
     Active Substance: BRINZOLAMIDE
     Indication: PRODUCT USED FOR UNKNOWN INDICATION
     Dosage: 2 DRP, QD
     Route: 065
     Dates: start: 2012
  3. OXALIPLATIN. [Suspect]
     Active Substance: OXALIPLATIN
     Indication: COLORECTAL CANCER METASTATIC
     Dosage: 141 MG, 1 IN 14 D
     Route: 042
     Dates: start: 20141015, end: 20141111
  4. FOLINIC ACID [Suspect]
     Active Substance: LEUCOVORIN
     Dosage: 664 MG, UNK
     Route: 042
     Dates: start: 20141218
  5. 5?FLUOROURACIL [Suspect]
     Active Substance: FLUOROURACIL
     Dosage: 3180 MG, UNK
     Route: 041
     Dates: start: 20141218
  6. 5?FLUOROURACIL [Suspect]
     Active Substance: FLUOROURACIL
     Dosage: 3984 MG, UNK
     Route: 041
     Dates: start: 20141015, end: 20141111
  7. BEVACIZUMAB. [Suspect]
     Active Substance: BEVACIZUMAB
     Indication: COLORECTAL CANCER METASTATIC
     Dosage: 326 MG, 1 IN 14 D
     Route: 042
     Dates: start: 20141015, end: 20141111
  8. BENSERAZIDE W/LEVODOPA [Concomitant]
     Indication: PRODUCT USED FOR UNKNOWN INDICATION
     Dosage: 400/100MG
     Route: 065
     Dates: start: 2012
  9. FOLINIC ACID [Suspect]
     Active Substance: LEUCOVORIN
     Indication: COLORECTAL CANCER METASTATIC
     Dosage: 664 MG, 1 IN 14 D
     Route: 042
     Dates: start: 20141015, end: 20141111
  10. MADOPAR [Concomitant]
     Active Substance: BENSERAZIDE HYDROCHLORIDE\LEVODOPA
     Indication: PRODUCT USED FOR UNKNOWN INDICATION
     Dosage: 250 MG, QD
     Route: 005
  11. 5?FLUOROURACIL [Suspect]
     Active Substance: FLUOROURACIL
     Indication: COLORECTAL CANCER METASTATIC
     Dosage: 664 MG, 1 IN 14 D
     Route: 042
     Dates: start: 20141015
  12. VANUCIZUMAB. [Suspect]
     Active Substance: VANUCIZUMAB
     Indication: PRODUCT USED FOR UNKNOWN INDICATION
     Dosage: UNK
     Route: 065
     Dates: start: 20141015, end: 20141111
  13. OXALIPLATIN. [Suspect]
     Active Substance: OXALIPLATIN
     Dosage: 103.35 MG, UNK
     Route: 042
     Dates: start: 20141218
  14. TRAZODONE [Concomitant]
     Active Substance: TRAZODONE HYDROCHLORIDE
     Indication: PRODUCT USED FOR UNKNOWN INDICATION
     Dosage: 100 MG, UNK
     Route: 065
     Dates: start: 2010
  15. ESCITALOPRAM [Concomitant]
     Active Substance: ESCITALOPRAM OXALATE
     Indication: PRODUCT USED FOR UNKNOWN INDICATION
     Dosage: 10 MG, UNK
     Route: 065
     Dates: start: 2010
  16. COMBIGAN [Concomitant]
     Active Substance: BRIMONIDINE TARTRATE\TIMOLOL MALEATE
     Indication: PRODUCT USED FOR UNKNOWN INDICATION
     Dosage: 2 DRP, QD
     Route: 065
     Dates: start: 2012

REACTIONS (8)
  - Asthenia [Unknown]
  - Urinary tract infection [Unknown]
  - General physical health deterioration [Unknown]
  - Dizziness [Unknown]
  - Faeces soft [Unknown]
  - Gastric ulcer [Recovered/Resolved with Sequelae]
  - Gastric neoplasm [Unknown]
  - Chills [Unknown]

NARRATIVE: CASE EVENT DATE: 20141106
